FAERS Safety Report 10580546 (Version 1)
Quarter: 2014Q4

REPORT INFORMATION
  Report Type: Spontaneous
  Country: US (occurrence: US)
  Receive Date: 20141113
  Receipt Date: 20141113
  Transmission Date: 20150529
  Serious: Yes (Hospitalization, Other)
  Sender: FDA-Public Use
  Company Number: US-PFIZER INC-2014307636

PATIENT
  Age: 66 Year
  Sex: Female
  Weight: 56.7 kg

DRUGS (1)
  1. XALATAN [Suspect]
     Active Substance: LATANOPROST
     Indication: GLAUCOMA
     Dosage: UNK
     Dates: start: 1994

REACTIONS (7)
  - Aneurysm [Unknown]
  - Thrombosis [Unknown]
  - Cerebral haemorrhage [Unknown]
  - Speech disorder [Unknown]
  - Brain oedema [Unknown]
  - Cerebral disorder [Unknown]
  - Musculoskeletal disorder [Unknown]

NARRATIVE: CASE EVENT DATE: 2014
